FAERS Safety Report 16209060 (Version 2)
Quarter: 2019Q2

REPORT INFORMATION
  Report Type: Spontaneous
  Country: DE (occurrence: DE)
  Receive Date: 20190417
  Receipt Date: 20190508
  Transmission Date: 20190711
  Serious: Yes (Hospitalization, Other)
  Sender: FDA-Public Use
  Company Number: PHHY2019DE086612

PATIENT
  Sex: Female
  Weight: 97 kg

DRUGS (1)
  1. PACLITAXEL. [Suspect]
     Active Substance: PACLITAXEL
     Indication: PRODUCT USED FOR UNKNOWN INDICATION
     Dosage: 600 MG/KG, QW
     Route: 042

REACTIONS (4)
  - Flushing [Unknown]
  - Hypersensitivity [Unknown]
  - Pulse absent [Unknown]
  - Loss of consciousness [Recovered/Resolved]
